FAERS Safety Report 16526346 (Version 1)
Quarter: 2019Q3

REPORT INFORMATION
  Report Type: Spontaneous
  Country: US (occurrence: US)
  Receive Date: 20190703
  Receipt Date: 20190703
  Transmission Date: 20191004
  Serious: Yes (Hospitalization, Other)
  Sender: FDA-Public Use
  Company Number: US-APOTEX-2019AP017569

PATIENT
  Age: 52 Year
  Sex: Female

DRUGS (8)
  1. ESCITALOPRAM [Concomitant]
     Active Substance: ESCITALOPRAM OXALATE
     Indication: ANXIETY
     Dosage: UNK
     Route: 065
  2. ROPINIROLE. [Suspect]
     Active Substance: ROPINIROLE
     Dosage: 8 MG, QD
     Route: 065
  3. CARBIDOPA AND LEVODOPA [Suspect]
     Active Substance: CARBIDOPA\LEVODOPA
     Indication: PARKINSON^S DISEASE
     Dosage: 3 DF, QD
     Route: 065
  4. QUETIAPINE. [Suspect]
     Active Substance: QUETIAPINE
     Dosage: 150 MG, PER DAY (INCREASING)
     Route: 065
  5. CLONAZEPAM. [Concomitant]
     Active Substance: CLONAZEPAM
     Indication: ANXIETY
     Dosage: 1 MG, Q.H.S.
     Route: 065
  6. ROPINIROLE. [Suspect]
     Active Substance: ROPINIROLE
     Indication: PARKINSON^S DISEASE
     Dosage: 16 MG, QD
     Route: 065
  7. CARBIDOPA AND LEVODOPA [Suspect]
     Active Substance: CARBIDOPA\LEVODOPA
     Dosage: 4 DF, QD
     Route: 065
  8. QUETIAPINE. [Suspect]
     Active Substance: QUETIAPINE
     Indication: PSYCHOTIC DISORDER
     Dosage: UNK
     Route: 065

REACTIONS (21)
  - Abdominal distension [Unknown]
  - On and off phenomenon [Unknown]
  - Hypotension [Unknown]
  - Chest pain [Unknown]
  - Anxiety [Unknown]
  - Increased appetite [Unknown]
  - Dyskinesia [Unknown]
  - Drug ineffective [Unknown]
  - Disturbance in social behaviour [Unknown]
  - Weight increased [Recovering/Resolving]
  - Drug abuse [Unknown]
  - Overdose [Unknown]
  - Dopamine dysregulation syndrome [Unknown]
  - Therapeutic response shortened [Unknown]
  - Abnormal behaviour [Unknown]
  - Drug withdrawal syndrome [Unknown]
  - Panic attack [Unknown]
  - Paranoia [Unknown]
  - Nausea [Unknown]
  - Mood swings [Unknown]
  - Somnolence [Recovered/Resolved]
